FAERS Safety Report 5017746-7 (Version None)
Quarter: 2006Q2

REPORT INFORMATION
  Report Type: 
  Country: None (occurrence: None)
  Receive Date: 20060530
  Receipt Date: 20050422
  Transmission Date: 20061013
  Serious: Yes (Hospitalization)
  Sender: FDA-Public Use
  Company Number: 2005063431

PATIENT
  Age: 66 Year
  Sex: Female
  Weight: 58 kg

DRUGS (4)
  1. LYRICA [Suspect]
     Indication: NEURALGIA
     Dosage: 150 MG , ORAL
     Route: 048
     Dates: start: 20050401, end: 20050415
  2. OXCARBAZEPINE [Concomitant]
  3. FENTANYL [Concomitant]
  4. MIRTAZAPINE [Concomitant]

REACTIONS (5)
  - ASTHENIA [None]
  - CONDITION AGGRAVATED [None]
  - FALL [None]
  - FEMORAL NECK FRACTURE [None]
  - MONOPARESIS [None]
